FAERS Safety Report 16683518 (Version 1)
Quarter: 2019Q3

REPORT INFORMATION
  Report Type: Spontaneous
  Country: US (occurrence: US)
  Receive Date: 20190808
  Receipt Date: 20190808
  Transmission Date: 20191004
  Serious: No
  Sender: FDA-Public Use
  Company Number: US-ALLERGAN-1900077US

PATIENT
  Sex: Male

DRUGS (2)
  1. TESTOSTERONE PUMP [Concomitant]
     Route: 050
  2. ANDRODERM [Suspect]
     Active Substance: TESTOSTERONE
     Indication: HORMONE REPLACEMENT THERAPY
     Dosage: 1 DF, QD
     Route: 062
     Dates: start: 201812

REACTIONS (1)
  - Application site rash [Not Recovered/Not Resolved]
